FAERS Safety Report 6634519-X (Version None)
Quarter: 2010Q1

REPORT INFORMATION
  Report Type: 
  Country: None (occurrence: None)
  Receive Date: 20100315
  Receipt Date: 20100303
  Transmission Date: 20100710
  Serious: Yes (Other)
  Sender: FDA-Public Use
  Company Number: JP-AMGEN-US379564

PATIENT
  Age: 23 Year
  Sex: Female
  Weight: 56 kg

DRUGS (5)
  1. ENBREL [Suspect]
     Indication: JUVENILE ARTHRITIS
     Route: 058
     Dates: start: 20060807
  2. METOLATE [Suspect]
     Route: 048
     Dates: start: 20080409, end: 20091111
  3. LOXONIN [Suspect]
     Route: 048
     Dates: start: 20091104, end: 20091125
  4. RHEUMATREX [Suspect]
     Indication: JUVENILE ARTHRITIS
     Route: 048
     Dates: start: 20050115, end: 20080408
  5. FOLIAMIN [Concomitant]
     Route: 048
     Dates: start: 20050115, end: 20091119

REACTIONS (4)
  - ABORTION SPONTANEOUS [None]
  - ARTHRITIS [None]
  - CONDITION AGGRAVATED [None]
  - DRUG EXPOSURE DURING PREGNANCY [None]
